FAERS Safety Report 4338969-6 (Version None)
Quarter: 2004Q2

REPORT INFORMATION
  Report Type: 
  Country: None (occurrence: None)
  Receive Date: 20040409
  Receipt Date: 20040402
  Transmission Date: 20050107
  Serious: Yes (Hospitalization)
  Sender: FDA-Public Use
  Company Number: 03P-056-0209413-00

PATIENT
  Age: 39 Year
  Sex: Male

DRUGS (11)
  1. NORVIR [Suspect]
     Indication: HIV INFECTION
     Dosage: 100 MG, 1 IN 1 D, ORAL
     Route: 048
     Dates: start: 20020709
  2. ATAZANAVIR [Suspect]
     Indication: HIV INFECTION
     Dosage: 300 MG, 1 IN 1 D, ORAL
     Route: 048
     Dates: start: 20020907, end: 20030115
  3. STAVUDINE [Suspect]
     Indication: HIV INFECTION
     Dosage: ORAL
     Route: 048
     Dates: start: 20020723, end: 20030127
  4. LAMIVUDINE [Suspect]
     Indication: HIV INFECTION
     Dosage: 300 MG, 1 IN 1 D, ORAL
     Route: 048
     Dates: start: 20020723, end: 20030127
  5. TENOFOVIR [Suspect]
     Indication: HIV INFECTION
     Dosage: 300 MG, 1 IN 1 D, ORAL
     Route: 048
     Dates: start: 20020723, end: 20030127
  6. KALETRA [Concomitant]
  7. AMITRIPTYLINE HYDROCHLORIDE [Suspect]
  8. GABAPENTIN [Concomitant]
  9. CLONAZEPAM [Concomitant]
  10. BUPRENORPHINE HYDROCHLORIDE [Concomitant]
  11. ABACAVIR [Concomitant]

REACTIONS (15)
  - BRONCHITIS [None]
  - CORNEAL ULCER [None]
  - DEPRESSION [None]
  - DRUG WITHDRAWAL SYNDROME [None]
  - EYE PAIN [None]
  - EYELID PTOSIS [None]
  - HEADACHE [None]
  - HYPERBILIRUBINAEMIA [None]
  - KERATITIS [None]
  - NEUROPATHY PERIPHERAL [None]
  - ORAL CANDIDIASIS [None]
  - PARAESTHESIA [None]
  - RENAL FAILURE [None]
  - RENAL TUBULAR DISORDER [None]
  - SCAB [None]
